FAERS Safety Report 13453565 (Version 3)
Quarter: 2019Q3

REPORT INFORMATION
  Report Type: Spontaneous
  Country: US (occurrence: US)
  Receive Date: 20170418
  Receipt Date: 20190814
  Transmission Date: 20191004
  Serious: Yes (Hospitalization, Disabling)
  Sender: FDA-Public Use
  Company Number: US-EMD SERONO-8153372

PATIENT
  Age: 48 Year
  Sex: Male

DRUGS (1)
  1. REBIF [Suspect]
     Active Substance: INTERFERON BETA-1A
     Indication: MULTIPLE SCLEROSIS
     Route: 058
     Dates: start: 20090715

REACTIONS (5)
  - Gait disturbance [Unknown]
  - Hypokinesia [Unknown]
  - Muscular weakness [Unknown]
  - Injection site cellulitis [Unknown]
  - Wheelchair user [Unknown]

NARRATIVE: CASE EVENT DATE: 201612
